FAERS Safety Report 16503865 (Version 4)
Quarter: 2019Q4

REPORT INFORMATION
  Report Type: Spontaneous
  Country: US (occurrence: US)
  Receive Date: 20190701
  Receipt Date: 20191127
  Transmission Date: 20200122
  Serious: No
  Sender: FDA-Public Use
  Company Number: US-PFIZER INC-2019239595

PATIENT
  Age: 70 Year
  Sex: Male

DRUGS (1)
  1. SUTENT [Suspect]
     Active Substance: SUNITINIB MALATE
     Indication: GASTROINTESTINAL STROMAL TUMOUR
     Dosage: 37.5 MG, UNK

REACTIONS (3)
  - Neoplasm progression [Unknown]
  - Communication disorder [Recovering/Resolving]
  - Malaise [Unknown]
